FAERS Safety Report 25920586 (Version 1)
Quarter: 2025Q4

REPORT INFORMATION
  Report Type: Spontaneous
  Country: GB (occurrence: GB)
  Receive Date: 20251014
  Receipt Date: 20251014
  Transmission Date: 20260118
  Serious: Yes (Hospitalization)
  Sender: MYLAN
  Company Number: GB-MYLANLABS-2025M1086538

PATIENT
  Sex: Male

DRUGS (8)
  1. CLOZARIL [Suspect]
     Active Substance: CLOZAPINE
     Indication: Schizophrenia
     Dosage: 450 MILLIGRAM, QD (450MG DAILY)
     Dates: start: 20110609
  2. CLOZARIL [Suspect]
     Active Substance: CLOZAPINE
     Dosage: 450 MILLIGRAM, QD (450MG DAILY)
     Dates: start: 20110609
  3. CLOZARIL [Suspect]
     Active Substance: CLOZAPINE
     Dosage: 450 MILLIGRAM, QD (450MG DAILY)
     Route: 048
     Dates: start: 20110609
  4. CLOZARIL [Suspect]
     Active Substance: CLOZAPINE
     Dosage: 450 MILLIGRAM, QD (450MG DAILY)
     Route: 048
     Dates: start: 20110609
  5. CLOZARIL [Suspect]
     Active Substance: CLOZAPINE
     Dosage: 425 MILLIGRAM, QD (425 MG PER DAY)
  6. CLOZARIL [Suspect]
     Active Substance: CLOZAPINE
     Dosage: 425 MILLIGRAM, QD (425 MG PER DAY)
  7. CLOZARIL [Suspect]
     Active Substance: CLOZAPINE
     Dosage: 425 MILLIGRAM, QD (425 MG PER DAY)
     Route: 048
  8. CLOZARIL [Suspect]
     Active Substance: CLOZAPINE
     Dosage: 425 MILLIGRAM, QD (425 MG PER DAY)
     Route: 048

REACTIONS (2)
  - Cerebrovascular accident [Unknown]
  - Intentional product use issue [Unknown]
